FAERS Safety Report 6237829-3 (Version None)
Quarter: 2009Q2

REPORT INFORMATION
  Report Type: 
  Country: None (occurrence: None)
  Receive Date: 20090617
  Receipt Date: 20090612
  Transmission Date: 20091009
  Serious: Yes (Other)
  Sender: FDA-Public Use
  Company Number: CHPA2008US16420

PATIENT
  Age: 19 Year
  Sex: Female
  Weight: 68.9 kg

DRUGS (5)
  1. THERAFLU DAYTIE SEVERE COLD NO PSE CAPLET (NCH) (PARACETAMOL, DEXTROME [Suspect]
     Indication: INFLUENZA LIKE ILLNESS
     Dosage: 2 DF, Q6H, ORAL
     Route: 048
     Dates: start: 20080911, end: 20080912
  2. THERAFLU DAYTIE SEVERE COLD NO PSE CAPLET (NCH) (PARACETAMOL, DEXTROME [Suspect]
     Indication: PYREXIA
     Dosage: 2 DF, Q6H, ORAL
     Route: 048
     Dates: start: 20080911, end: 20080912
  3. THERAFLU SEVERE COLD NIGHTTIME (NCH) (PARACETAMOL, DEXTROMETHORPHAN, P [Suspect]
     Indication: INFLUENZA LIKE ILLNESS
     Dosage: 1 DF, QHS, ORAL
     Route: 048
     Dates: start: 20080911, end: 20080911
  4. THERAFLU SEVERE COLD NIGHTTIME (NCH) (PARACETAMOL, DEXTROMETHORPHAN, P [Suspect]
     Indication: PYREXIA
     Dosage: 1 DF, QHS, ORAL
     Route: 048
     Dates: start: 20080911, end: 20080911
  5. TYLENOL [Concomitant]

REACTIONS (8)
  - DISCOMFORT [None]
  - GENITAL RASH [None]
  - LIVER FUNCTION TEST ABNORMAL [None]
  - PAIN [None]
  - PRURITUS GENERALISED [None]
  - RASH GENERALISED [None]
  - SKIN LESION [None]
  - SWELLING [None]
